FAERS Safety Report 10375369 (Version 3)
Quarter: 2014Q4

REPORT INFORMATION
  Report Type: Spontaneous
  Country: US (occurrence: US)
  Receive Date: 20140811
  Receipt Date: 20141014
  Transmission Date: 20150528
  Serious: Yes (Life-Threatening, Hospitalization, Other)
  Sender: FDA-Public Use
  Company Number: US-BAYER-2014-118316

PATIENT
  Age: 19 Year
  Sex: Female
  Weight: 54.42 kg

DRUGS (3)
  1. MACROBID [Concomitant]
     Active Substance: NITROFURANTOIN\NITROFURANTOIN MONOHYDRATE
  2. MIRENA [Suspect]
     Active Substance: LEVONORGESTREL
     Indication: CONTRACEPTION
     Dosage: 20 MCG/24HR, CONT
     Route: 015
     Dates: start: 20090902, end: 20100903
  3. MIRENA [Suspect]
     Active Substance: LEVONORGESTREL
     Indication: CONTRACEPTION
     Dosage: 20 MCG/24HR, CONT
     Route: 015
     Dates: start: 20090820, end: 20090826

REACTIONS (12)
  - Feeling abnormal [None]
  - Anhedonia [None]
  - Activities of daily living impaired [None]
  - Abdominal pain [None]
  - Depression [None]
  - Uterine perforation [None]
  - Injury [None]
  - Device dislocation [None]
  - General physical health deterioration [None]
  - Emotional distress [None]
  - Infection [None]
  - Anxiety [None]

NARRATIVE: CASE EVENT DATE: 201009
